FAERS Safety Report 24949656 (Version 1)
Quarter: 2025Q1

REPORT INFORMATION
  Report Type: Spontaneous
  Country: US (occurrence: None)
  Receive Date: 20250209
  Receipt Date: 20250209
  Transmission Date: 20250409
  Serious: Yes (Disabling)
  Sender: FDA-CTU
  Company Number: None

PATIENT
  Age: 51 Year
  Sex: Female
  Weight: 56.25 kg

DRUGS (1)
  1. DUTASTERIDE [Suspect]
     Active Substance: DUTASTERIDE
     Indication: Hair growth abnormal
     Dates: start: 20240227, end: 20240720

REACTIONS (30)
  - Shoulder girdle pain [None]
  - Pain in extremity [None]
  - Nerve compression [None]
  - Arthralgia [None]
  - Generalised anxiety disorder [None]
  - Cognitive disorder [None]
  - Panic attack [None]
  - Tremor [None]
  - Muscle twitching [None]
  - Muscle spasms [None]
  - Arthralgia [None]
  - Myalgia [None]
  - Anxiety [None]
  - Depressed mood [None]
  - Paranoia [None]
  - Anger [None]
  - Crying [None]
  - Restlessness [None]
  - Weight decreased [None]
  - Hunger [None]
  - Chills [None]
  - Blood pressure increased [None]
  - Heart rate increased [None]
  - Palpitations [None]
  - Therapy cessation [None]
  - Muscle atrophy [None]
  - Depression [None]
  - Fatigue [None]
  - Asthenia [None]
  - Dizziness [None]

NARRATIVE: CASE EVENT DATE: 20240701
